FAERS Safety Report 11391068 (Version 1)
Quarter: 2015Q3

REPORT INFORMATION
  Report Type: Spontaneous
  Country: IT (occurrence: None)
  Receive Date: 20150813
  Receipt Date: 20150813
  Transmission Date: 20151125
  Serious: Yes (Hospitalization)
  Sender: FDA-Public Use
  Company Number: 2015RR-95264

PATIENT
  Age: 89 Year
  Sex: Male

DRUGS (7)
  1. FUROSEMIDE (FUROSEMIDE) UNKNOWN [Suspect]
     Active Substance: FUROSEMIDE
     Indication: PRODUCT USED FOR UNKNOWN INDICATION
     Route: 048
     Dates: start: 20100101, end: 20130102
  2. CARDIOSAPIRIN (ASPIRIN) [Concomitant]
  3. NITROGLYCERIN. [Concomitant]
     Active Substance: NITROGLYCERIN
  4. RAMIPRIL. [Suspect]
     Active Substance: RAMIPRIL
     Indication: PRODUCT USED FOR UNKNOWN INDICATION
     Route: 048
     Dates: start: 20100101, end: 20130102
  5. CARVEDILOL. [Concomitant]
     Active Substance: CARVEDILOL
  6. REPAGLINIDE. [Concomitant]
     Active Substance: REPAGLINIDE
  7. POTASSIUM CANRENOATE (POTASSIUM CANRENOATE) [Suspect]
     Active Substance: CANRENOATE POTASSIUM
     Indication: PRODUCT USED FOR UNKNOWN INDICATION
     Route: 048
     Dates: start: 20100101, end: 20130102

REACTIONS (2)
  - Dehydration [None]
  - Acute kidney injury [None]

NARRATIVE: CASE EVENT DATE: 20121225
